FAERS Safety Report 7909618-2 (Version None)
Quarter: 2011Q4

REPORT INFORMATION
  Report Type: 
  Country: None (occurrence: None)
  Receive Date: 20111111
  Receipt Date: 20111102
  Transmission Date: 20120403
  Serious: Yes (Hospitalization)
  Sender: FDA-Public Use
  Company Number: US-GLAXOSMITHKLINE-A0871765A

PATIENT
  Age: 44 Year
  Sex: Female
  Weight: 142.7 kg

DRUGS (7)
  1. AVANDIA [Suspect]
     Indication: TYPE 2 DIABETES MELLITUS
     Dosage: 4MG PER DAY
     Route: 048
     Dates: end: 20070701
  2. XANAX [Concomitant]
  3. AVANDARYL [Suspect]
     Indication: TYPE 2 DIABETES MELLITUS
     Route: 048
  4. ZOLOFT [Concomitant]
  5. PREVACID [Concomitant]
  6. FLEXERIL [Concomitant]
  7. METOPROLOL [Concomitant]

REACTIONS (9)
  - CONGESTIVE CARDIOMYOPATHY [None]
  - ATRIAL FIBRILLATION [None]
  - INJURY [None]
  - MALAISE [None]
  - EMOTIONAL DISTRESS [None]
  - MYOCARDIAL INFARCTION [None]
  - PAIN [None]
  - FEAR [None]
  - ANHEDONIA [None]
